FAERS Safety Report 12978968 (Version 2)
Quarter: 2016Q4

REPORT INFORMATION
  Report Type: Spontaneous
  Country: BR (occurrence: BR)
  Receive Date: 20161128
  Receipt Date: 20161201
  Transmission Date: 20170207
  Serious: Yes (Hospitalization)
  Sender: FDA-Public Use
  Company Number: BR-009507513-1609BRA012818

PATIENT
  Age: 75 Year
  Sex: Female
  Weight: 70 kg

DRUGS (5)
  1. DIOSMIN (+) HESPERIDIN [Concomitant]
     Indication: CARDIOVASCULAR DISORDER
     Dosage: 1 TABLET DAILY
     Dates: start: 2013
  2. ACETYLSALICYLIC ACID [Concomitant]
     Active Substance: ASPIRIN
     Dosage: 1 TABLET DAILY
     Dates: start: 2013
  3. EXODUS (ESCITALOPRAM OXALATE) [Concomitant]
     Indication: ANXIETY
     Dosage: 1 TABLET DAILY
     Dates: start: 2013
  4. DIOVAN HCT [Concomitant]
     Active Substance: HYDROCHLOROTHIAZIDE\VALSARTAN
     Indication: BLOOD PRESSURE ABNORMAL
     Dosage: UNK
     Dates: start: 2008
  5. ZETIA [Suspect]
     Active Substance: EZETIMIBE
     Indication: BLOOD CHOLESTEROL INCREASED
     Dosage: 1 TABLET DAILY
     Route: 048
     Dates: start: 201607, end: 20161102

REACTIONS (6)
  - Vein disorder [Unknown]
  - Vaginal discharge [Unknown]
  - Micturition urgency [Recovered/Resolved]
  - Dark circles under eyes [Recovered/Resolved]
  - Bladder discomfort [Recovered/Resolved]
  - Insomnia [Recovered/Resolved]

NARRATIVE: CASE EVENT DATE: 2016
